FAERS Safety Report 15118541 (Version 1)
Quarter: 2018Q3

REPORT INFORMATION
  Report Type: Spontaneous
  Country: US (occurrence: US)
  Receive Date: 20180709
  Receipt Date: 20180709
  Transmission Date: 20181010
  Serious: Yes (Hospitalization, Other)
  Sender: FDA-Public Use
  Company Number: US-MANKIND-000064

PATIENT
  Age: 45 Year
  Sex: Male

DRUGS (2)
  1. INVEGA SUSTENNA [Concomitant]
     Active Substance: PALIPERIDONE PALMITATE
     Indication: SCHIZOPHRENIA
     Route: 030
  2. RISPERIDONE. [Suspect]
     Active Substance: RISPERIDONE
     Indication: SCHIZOPHRENIA
     Dosage: FOR 2 YEARS

REACTIONS (3)
  - Suicidal ideation [Unknown]
  - Atrioventricular block first degree [Recovered/Resolved]
  - Major depression [Unknown]
